FAERS Safety Report 12283577 (Version 1)
Quarter: 2016Q2

REPORT INFORMATION
  Report Type: Spontaneous
  Country: US (occurrence: US)
  Receive Date: 20160419
  Receipt Date: 20160419
  Transmission Date: 20160815
  Serious: Yes (Hospitalization, Other)
  Sender: FDA-Public Use
  Company Number: US-TEVA-519087USA

PATIENT
  Age: 75 Year
  Sex: Female

DRUGS (8)
  1. HYDROCODONE, PARACETAMOL [Concomitant]
     Active Substance: ACETAMINOPHEN\HYDROCODONE
     Route: 065
  2. ESOMEPRAZOLE [Concomitant]
     Active Substance: ESOMEPRAZOLE
     Route: 065
  3. CLOPIDOGREL [Suspect]
     Active Substance: CLOPIDOGREL BISULFATE
     Route: 065
  4. PROPOFOL. [Concomitant]
     Active Substance: PROPOFOL
  5. PREGABALIN. [Concomitant]
     Active Substance: PREGABALIN
     Route: 065
  6. RISEDRONIC ACID [Concomitant]
     Active Substance: RISEDRONIC ACID
     Route: 065
  7. LEVOTHYROXINE SODIUM. [Concomitant]
     Active Substance: LEVOTHYROXINE SODIUM
     Route: 065
  8. ROSUVASTATIN. [Concomitant]
     Active Substance: ROSUVASTATIN
     Route: 065

REACTIONS (2)
  - Drug-induced liver injury [Recovered/Resolved]
  - Idiosyncratic drug reaction [Recovered/Resolved]
